FAERS Safety Report 7493375-0 (Version None)
Quarter: 2011Q2

REPORT INFORMATION
  Report Type: 
  Country: None (occurrence: None)
  Receive Date: 20110520
  Receipt Date: 20110507
  Transmission Date: 20111010
  Serious: Yes (Hospitalization)
  Sender: FDA-Public Use
  Company Number: IT-ELI_LILLY_AND_COMPANY-IT201105002813

PATIENT
  Age: 68 Year
  Sex: Female

DRUGS (7)
  1. METFORMIN HCL [Concomitant]
  2. DULOXETINE HYDROCHLORIDE [Suspect]
     Indication: STRESS URINARY INCONTINENCE
     Dosage: 40 MG, BID
     Route: 048
  3. NEBIVOLOL HCL [Concomitant]
  4. RISEDRONATE SODIUM [Concomitant]
  5. VALSARTAN [Concomitant]
  6. OMEPRAZOLE [Concomitant]
  7. DOXAZOSIN MESYLATE [Concomitant]

REACTIONS (1)
  - STRESS CARDIOMYOPATHY [None]
